FAERS Safety Report 4586241-1 (Version None)
Quarter: 2005Q1

REPORT INFORMATION
  Report Type: 
  Country: None (occurrence: None)
  Receive Date: 20050217
  Receipt Date: 20030130
  Transmission Date: 20050727
  Serious: Yes (Hospitalization, Disabling, Other)
  Sender: FDA-Public Use
  Company Number: US-MERCK-0302USA00002

PATIENT
  Age: 73 Year
  Sex: Female
  Weight: 75 kg

DRUGS (17)
  1. ACCUPRIL [Concomitant]
     Indication: HYPERTENSION
     Route: 065
     Dates: start: 20000329, end: 20010914
  2. LASIX [Concomitant]
     Indication: OEDEMA PERIPHERAL
     Route: 065
     Dates: start: 20000501, end: 20010501
  3. ULTRAM [Concomitant]
     Route: 065
     Dates: start: 20000601
  4. ULTRAM [Concomitant]
     Route: 048
     Dates: start: 20001101
  5. PLAQUENIL [Concomitant]
     Indication: ARTHRALGIA
     Route: 048
     Dates: start: 20001201
  6. PLAQUENIL [Concomitant]
     Indication: INFLAMMATION
     Route: 048
     Dates: start: 20001201
  7. ALLEGRA [Concomitant]
     Route: 065
  8. VITAMINS (UNSPECIFIED) [Concomitant]
     Route: 065
  9. VIOXX [Suspect]
     Indication: ARTHRALGIA
     Route: 048
     Dates: start: 20000301, end: 20010901
  10. VIOXX [Suspect]
     Route: 048
     Dates: start: 20010901, end: 20011001
  11. VIOXX [Suspect]
     Route: 048
     Dates: start: 20011001, end: 20021001
  12. VIOXX [Suspect]
     Route: 048
  13. VIOXX [Suspect]
     Indication: INFLAMMATION
     Route: 048
     Dates: start: 20000301, end: 20010901
  14. VIOXX [Suspect]
     Route: 048
     Dates: start: 20010901, end: 20011001
  15. VIOXX [Suspect]
     Route: 048
     Dates: start: 20011001, end: 20021001
  16. VIOXX [Suspect]
     Route: 048
  17. PREMARIN [Concomitant]
     Indication: PROPHYLAXIS
     Route: 065
     Dates: start: 19610101, end: 20020101

REACTIONS (43)
  - ARTHRALGIA [None]
  - ASTHENIA [None]
  - ATELECTASIS [None]
  - BURSITIS [None]
  - CAROTID ARTERY STENOSIS [None]
  - CHRONIC OBSTRUCTIVE PULMONARY DISEASE [None]
  - DECREASED APPETITE [None]
  - DEEP VEIN THROMBOSIS [None]
  - DEPRESSION [None]
  - DIABETES MELLITUS [None]
  - DRUG INEFFECTIVE [None]
  - DYSPNOEA [None]
  - EPICONDYLITIS [None]
  - FAECES DISCOLOURED [None]
  - FATIGUE [None]
  - HYPERCHOLESTEROLAEMIA [None]
  - HYPERTENSION [None]
  - INFLAMMATION [None]
  - INJURY [None]
  - INTERVERTEBRAL DISC DEGENERATION [None]
  - LOW DENSITY LIPOPROTEIN INCREASED [None]
  - MALIGNANT MELANOMA [None]
  - MENISCUS LESION [None]
  - MENOPAUSAL SYMPTOMS [None]
  - MITRAL VALVE INCOMPETENCE [None]
  - MIXED INCONTINENCE [None]
  - MONOCYTE COUNT DECREASED [None]
  - MUSCLE SPASMS [None]
  - MYALGIA [None]
  - MYOSITIS [None]
  - NEUTROPHIL COUNT INCREASED [None]
  - NORMOCHROMIC NORMOCYTIC ANAEMIA [None]
  - OEDEMA PERIPHERAL [None]
  - OSTEOARTHRITIS [None]
  - OSTEOMYELITIS [None]
  - PAIN [None]
  - POST THROMBOTIC SYNDROME [None]
  - SKIN DISCOLOURATION [None]
  - SKIN LESION [None]
  - SYNCOPE [None]
  - TENDONITIS [None]
  - TRICUSPID VALVE INCOMPETENCE [None]
  - WEIGHT DECREASED [None]
